FAERS Safety Report 15686712 (Version 5)
Quarter: 2020Q3

REPORT INFORMATION
  Report Type: Report from Study
  Country: US (occurrence: US)
  Receive Date: 20181204
  Receipt Date: 20200924
  Transmission Date: 20201102
  Serious: No
  Sender: FDA-Public Use
  Company Number: PHEH2018US049995

PATIENT
  Age: 42 Year
  Sex: Male

DRUGS (3)
  1. ILARIS [Suspect]
     Active Substance: CANAKINUMAB
     Indication: HEREDITARY NEUROPATHIC AMYLOIDOSIS
     Dosage: 300 MG
     Route: 058
     Dates: start: 20161107
  2. ILARIS [Suspect]
     Active Substance: CANAKINUMAB
     Indication: PYREXIA
     Dosage: 300 MG, QMO
     Route: 058
     Dates: start: 20160907
  3. ILARIS [Suspect]
     Active Substance: CANAKINUMAB
     Dosage: 300 MG, Q4 WEEKS
     Route: 058
     Dates: start: 20161116

REACTIONS (6)
  - Illness [Unknown]
  - Product use in unapproved indication [Unknown]
  - Vomiting [Unknown]
  - Product dose omission issue [Unknown]
  - Pyrexia [Unknown]
  - Pain [Unknown]

NARRATIVE: CASE EVENT DATE: 20200727
